FAERS Safety Report 5000789-7 (Version None)
Quarter: 2006Q2

REPORT INFORMATION
  Report Type: 
  Country: None (occurrence: None)
  Receive Date: 20060512
  Receipt Date: 20060126
  Transmission Date: 20061013
  Serious: Yes (Hospitalization, Other)
  Sender: FDA-Public Use
  Company Number: US-MERCK-0601USA03608

PATIENT
  Age: 69 Year
  Sex: Male
  Weight: 73 kg

DRUGS (22)
  1. VIOXX [Suspect]
     Indication: ARTHRALGIA
     Route: 048
     Dates: start: 19990601, end: 20040901
  2. VIOXX [Suspect]
     Indication: ARTHRITIS
     Route: 048
     Dates: start: 19990601, end: 20040901
  3. DICYCLOMINE HYDROCHLORIDE [Concomitant]
     Route: 065
  4. PREVACID [Concomitant]
     Route: 065
  5. GLYCOLAX [Concomitant]
     Route: 065
  6. ZOCOR [Concomitant]
     Route: 065
     Dates: end: 20050101
  7. ALLOPURINOL [Concomitant]
     Route: 065
     Dates: start: 20020101, end: 20040101
  8. PROPRANOLOL HYDROCHLORIDE [Concomitant]
     Route: 065
  9. METHYLPREDNISOLONE [Concomitant]
     Route: 065
  10. NITROQUICK [Concomitant]
     Route: 065
  11. TRIMOX [Concomitant]
     Route: 065
  12. PLAVIX [Concomitant]
     Route: 065
     Dates: end: 20050101
  13. CIPRO [Concomitant]
     Route: 065
  14. ALTACE [Concomitant]
     Route: 065
  15. LACTULOSE [Concomitant]
     Route: 065
  16. PROCARDIA XL [Concomitant]
     Indication: CHEST PAIN
     Route: 065
     Dates: start: 19850101, end: 20020101
  17. PROPACET 100 [Concomitant]
     Route: 065
  18. ENULOSE [Concomitant]
     Route: 065
  19. NIFEDIPINE [Concomitant]
     Route: 065
  20. ASPIRIN [Concomitant]
     Route: 065
     Dates: start: 20000101, end: 20050101
  21. METOPROLOL [Concomitant]
     Indication: HYPERTENSION
     Route: 065
     Dates: start: 20020101
  22. LOPRESSOR [Concomitant]
     Route: 065
     Dates: start: 19850101, end: 20050101

REACTIONS (11)
  - ADRENAL MASS [None]
  - CHEST PAIN [None]
  - CONSTIPATION [None]
  - CORONARY ARTERY DISEASE [None]
  - COUGH [None]
  - DYSPNOEA [None]
  - INJURY [None]
  - MYOCARDIAL INFARCTION [None]
  - PAIN IN EXTREMITY [None]
  - PNEUMONIA [None]
  - PULMONARY CONGESTION [None]
